FAERS Safety Report 11755170 (Version 2)
Quarter: 2015Q4

REPORT INFORMATION
  Report Type: Spontaneous
  Country: CA (occurrence: CA)
  Receive Date: 20151119
  Receipt Date: 20151125
  Transmission Date: 20160304
  Serious: Yes (Hospitalization)
  Sender: FDA-Public Use
  Company Number: CHPA2015CA013488

PATIENT
  Age: 24 Year
  Sex: Female

DRUGS (3)
  1. NEOCITRAN EXTRA STRENGTH SINUS [Suspect]
     Active Substance: ACETAMINOPHEN\PHENYLEPHRINE
     Indication: NASAL CONGESTION
     Dosage: UNK
     Route: 048
     Dates: start: 201510, end: 20151101
  2. EURO-FER [Concomitant]
     Indication: BLOOD IRON DECREASED
     Dosage: UNK
     Route: 065
  3. NEOCITRAN EXTRA STRENGTH SINUS [Suspect]
     Active Substance: ACETAMINOPHEN\PHENYLEPHRINE
     Indication: SINUS CONGESTION
     Dosage: UNK
     Route: 048
     Dates: start: 201508

REACTIONS (5)
  - Hepatic pain [Recovered/Resolved]
  - Vomiting [Unknown]
  - Liver disorder [Not Recovered/Not Resolved]
  - Hepatic pain [Not Recovered/Not Resolved]
  - Nausea [Unknown]

NARRATIVE: CASE EVENT DATE: 20150811
